FAERS Safety Report 10744823 (Version 2)
Quarter: 2015Q1

REPORT INFORMATION
  Report Type: Spontaneous
  Country: CZ (occurrence: None)
  Receive Date: 20150126
  Receipt Date: 20150204
  Transmission Date: 20150721
  Serious: Yes (Death, Other)
  Sender: FDA-Public Use
  Company Number: 2015-10352

PATIENT
  Age: 66 Year
  Sex: Male

DRUGS (3)
  1. EYLEA [Suspect]
     Active Substance: AFLIBERCEPT
     Indication: NEOVASCULAR AGE-RELATED MACULAR DEGENERATION
     Route: 031
     Dates: start: 20141205, end: 20141205
  2. LUSOPRESS (NITRENDIPINE) [Concomitant]
  3. PRESTARIUM NEO (PERINDOPRIL ARGININE) [Concomitant]

REACTIONS (6)
  - Myocardial infarction [None]
  - Coronary artery occlusion [None]
  - Brain injury [None]
  - Chest injury [None]
  - Ventricular fibrillation [None]
  - Cardiogenic shock [None]

NARRATIVE: CASE EVENT DATE: 20150107
